FAERS Safety Report 5523116-5 (Version None)
Quarter: 2007Q4

REPORT INFORMATION
  Report Type: 
  Country: None (occurrence: None)
  Receive Date: 20071121
  Receipt Date: 20071110
  Transmission Date: 20080405
  Serious: Yes (Other)
  Sender: FDA-Public Use
  Company Number: US-ROCHE-531703

PATIENT
  Sex: Female

DRUGS (1)
  1. BONIVA [Suspect]
     Indication: OSTEOPOROSIS
     Dosage: DOSAGE: 1 BOLUS IV INFUSION
     Route: 042
     Dates: start: 20070101

REACTIONS (1)
  - GASTROINTESTINAL HAEMORRHAGE [None]
